FAERS Safety Report 9812516 (Version 2)
Quarter: 2014Q1

REPORT INFORMATION
  Report Type: Report from Study
  Country: US (occurrence: US)
  Receive Date: 20140113
  Receipt Date: 20140113
  Transmission Date: 20141002
  Serious: Yes (Other)
  Sender: FDA-Public Use
  Company Number: US-ROCHE-696371

PATIENT
  Age: 52 Year
  Sex: Male

DRUGS (2)
  1. ERLOTINIB [Suspect]
     Indication: NEOPLASM
     Dosage: 150 MG, QD
     Route: 048
     Dates: start: 20091203, end: 20091229
  2. VISMODEGIB [Suspect]
     Indication: NEOPLASM
     Dosage: 150 MG, QD
     Route: 048
     Dates: start: 20091203, end: 20091229

REACTIONS (13)
  - Exfoliative rash [Not Recovered/Not Resolved]
  - Stevens-Johnson syndrome [Unknown]
  - Nausea [Unknown]
  - Hyponatraemia [Unknown]
  - Decreased appetite [Unknown]
  - Hiccups [Unknown]
  - Abdominal pain [Unknown]
  - Pruritus [Unknown]
  - Vomiting [Unknown]
  - Dehydration [Unknown]
  - Dyspnoea [Unknown]
  - Blood alkaline phosphatase increased [Unknown]
  - Aspartate aminotransferase increased [Unknown]
